FAERS Safety Report 7854725-6 (Version None)
Quarter: 2011Q4

REPORT INFORMATION
  Report Type: 
  Country: None (occurrence: None)
  Receive Date: 20111026
  Receipt Date: 20110725
  Transmission Date: 20120403
  Serious: No
  Sender: FDA-Public Use
  Company Number: US-MUTUAL PHARMACEUTICAL COMPANY, INC.-CLCY20110092

PATIENT
  Sex: Female
  Weight: 68.1 kg

DRUGS (14)
  1. COLCRYS [Suspect]
     Route: 048
     Dates: start: 20110711
  2. COMBIVENT INHALANT [Concomitant]
     Indication: DYSPNOEA
     Route: 048
  3. ZOLPIDEM [Concomitant]
     Route: 048
  4. PREMARIN [Concomitant]
     Indication: HORMONE REPLACEMENT THERAPY
     Route: 048
  5. AMLODIPINE [Concomitant]
     Indication: HYPERTENSION
     Route: 048
  6. COLCRYS [Suspect]
     Indication: GOUT
     Route: 048
     Dates: start: 20110101, end: 20110710
  7. MECLIZINE [Concomitant]
     Indication: VERTIGO
     Route: 048
     Dates: start: 20110501
  8. LORATADINE [Concomitant]
     Indication: HYPERSENSITIVITY
     Route: 048
  9. NEURONTIN [Concomitant]
     Indication: PAIN IN EXTREMITY
     Route: 048
  10. DIOVAN [Concomitant]
     Indication: HYPERTENSION
     Route: 048
  11. SERTRALINE HYDROCHLORIDE [Concomitant]
     Indication: ANXIETY
     Route: 048
  12. TRAMADOL HCL [Concomitant]
     Indication: BACK PAIN
     Route: 048
  13. LIDODERM [Concomitant]
     Indication: PAIN
     Route: 062
  14. RELAFEN [Concomitant]
     Indication: PAIN IN EXTREMITY
     Route: 048

REACTIONS (3)
  - MICTURITION DISORDER [None]
  - DIARRHOEA [None]
  - SKIN DISCOLOURATION [None]
